FAERS Safety Report 8894731 (Version 1)
Quarter: 2012Q4

REPORT INFORMATION
  Report Type: 
  Country: SE (occurrence: SE)
  Receive Date: 20121108
  Receipt Date: 20121108
  Transmission Date: 20130627
  Serious: Yes (Hospitalization)
  Sender: FDA-Public Use
  Company Number: SE-PFIZER INC-2012273160

PATIENT
  Age: 51 Year
  Sex: Female
  Weight: 92.97 kg

DRUGS (20)
  1. GENOTROPIN [Suspect]
     Indication: GROWTH HORMONE DEFICIENCY
     Dosage: 0.5 mg, 1x/day,7 injections/week.
     Route: 058
     Dates: start: 20091217
  2. AMARYL [Concomitant]
     Indication: NIDDM
     Dosage: UNK
     Dates: start: 20080207
  3. PULMICORT [Concomitant]
     Indication: ASTHMA
     Dosage: UNK
     Dates: start: 20040927
  4. ENALAPRIL [Concomitant]
     Indication: HYPERTENSION
     Dosage: UNK
     Dates: start: 20040929
  5. LIVOSTIN [Concomitant]
     Indication: ALLERGY
     Dosage: UNK
     Dates: start: 20040929
  6. LORATADINE [Concomitant]
     Indication: ALLERGY
     Dosage: UNK
     Dates: start: 20040929
  7. JANUVIA [Concomitant]
     Indication: NIDDM
     Dosage: UNK
     Dates: start: 20091217
  8. SIMVASTATIN [Concomitant]
     Indication: HYPERLIPIDEMIA
     Dosage: UNK
     Dates: start: 20040929
  9. STILNOCT [Concomitant]
     Indication: SLEEP DISTURBANCE
     Dosage: UNK
     Dates: start: 20040929
  10. VENTOLINE [Concomitant]
     Indication: ASTHMA
     Dosage: UNK
     Dates: start: 20040929
  11. TRYPTIZOL [Concomitant]
     Dosage: UNK
     Dates: start: 20100531
  12. ALVEDON [Concomitant]
     Indication: PAIN
     Dosage: UNK
     Dates: start: 20050218
  13. OMEPRAZOL [Concomitant]
     Indication: GASTRITIS
     Dosage: UNK
     Dates: start: 20050218
  14. INDERAL [Concomitant]
     Dosage: UNK
     Dates: start: 20051227
  15. TROMBYL [Concomitant]
     Indication: ANTICOAGULANT THERAPY
     Dosage: UNK
     Dates: start: 20060508
  16. STRATTERA [Concomitant]
     Dosage: UNK
     Dates: start: 20110412
  17. METFORMIN [Concomitant]
     Indication: DIABETES MELLITUS
     Dosage: UNK
     Dates: start: 20041001
  18. LEVAXIN [Concomitant]
     Indication: TSH DECREASED
     Dosage: UNK
     Dates: start: 20100302
  19. LEVAXIN [Concomitant]
     Indication: PRIMARY HYPOTHYROIDISM
  20. NOVOMIX [Concomitant]
     Indication: NIDDM
     Dosage: UNK
     Dates: start: 20091217

REACTIONS (1)
  - Gastric disorder [Unknown]
